FAERS Safety Report 10080162 (Version 1)
Quarter: 2014Q2

REPORT INFORMATION
  Report Type: Spontaneous
  Country: IT (occurrence: IT)
  Receive Date: 20140415
  Receipt Date: 20140415
  Transmission Date: 20141212
  Serious: Yes (Other)
  Sender: FDA-Public Use
  Company Number: IT-MYLANLABS-2014S1007839

PATIENT
  Age: 74 Year
  Sex: Female

DRUGS (1)
  1. METFORMIN [Suspect]
     Indication: DIABETES MELLITUS
     Dosage: 500 DF DAILY
     Route: 048
     Dates: start: 20130101, end: 20131102

REACTIONS (4)
  - Head injury [Recovering/Resolving]
  - Hypoglycaemia [Recovering/Resolving]
  - Presyncope [Recovering/Resolving]
  - Limb injury [Recovering/Resolving]
